FAERS Safety Report 5240129-1 (Version None)
Quarter: 2007Q1

REPORT INFORMATION
  Report Type: 
  Country: None (occurrence: None)
  Receive Date: 20070216
  Receipt Date: 20070111
  Transmission Date: 20070707
  Serious: Yes (Other)
  Sender: FDA-Public Use
  Company Number: FR-PFIZER INC-2007011056

PATIENT
  Age: 52 Year
  Sex: Female

DRUGS (4)
  1. LYRICA [Suspect]
     Indication: PAIN
  2. RIVOTRIL [Concomitant]
  3. SKENAN [Concomitant]
  4. EFFEXOR [Concomitant]

REACTIONS (5)
  - CONSTIPATION [None]
  - LOSS OF CONSCIOUSNESS [None]
  - MUCOUS STOOLS [None]
  - MUSCLE SPASMS [None]
  - ROAD TRAFFIC ACCIDENT [None]
